FAERS Safety Report 19889445 (Version 1)
Quarter: 2021Q3

REPORT INFORMATION
  Report Type: Spontaneous
  Country: US (occurrence: US)
  Receive Date: 20210927
  Receipt Date: 20210927
  Transmission Date: 20211014
  Serious: Yes (Other)
  Sender: FDA-Public Use
  Company Number: US-PFIZER INC-2021243654

PATIENT
  Age: 79 Year
  Sex: Female

DRUGS (1)
  1. IBRANCE [Suspect]
     Active Substance: PALBOCICLIB
     Indication: BREAST CANCER FEMALE
     Dosage: 100 MG, CYCLIC (QD FOR 21 DAYS ON 7 OFF)
     Dates: start: 20201202

REACTIONS (2)
  - Transient ischaemic attack [Unknown]
  - Lip dry [Unknown]

NARRATIVE: CASE EVENT DATE: 20210808
